FAERS Safety Report 7617629-X (Version None)
Quarter: 2011Q3

REPORT INFORMATION
  Report Type: 
  Country: None (occurrence: None)
  Receive Date: 20110718
  Receipt Date: 20110704
  Transmission Date: 20111222
  Serious: Yes (Other)
  Sender: FDA-Public Use
  Company Number: US-MYLANLABS-2011S1014113

PATIENT
  Age: 12 Month
  Sex: Male

DRUGS (1)
  1. GLIPIZIDE [Suspect]
     Indication: ACCIDENTAL POISONING
     Route: 048

REACTIONS (2)
  - ACCIDENTAL EXPOSURE [None]
  - HYPOGLYCAEMIA [None]
